FAERS Safety Report 5827819-4 (Version None)
Quarter: 2008Q3

REPORT INFORMATION
  Report Type: 
  Country: None (occurrence: None)
  Receive Date: 20080728
  Receipt Date: 20080723
  Transmission Date: 20090109
  Serious: Yes (Other)
  Sender: FDA-Public Use
  Company Number: CHPA2008US12432

PATIENT
  Age: 19 Year
  Sex: Female

DRUGS (1)
  1. GAS-X EXTRA STR CHEWABLE TABLETS UNKNOWN (NCH)(SIMETHICONE) CHEWABLE T [Suspect]
     Dosage: 250 MG, QD, ORAL
     Route: 048
     Dates: start: 20080722

REACTIONS (1)
  - VAGINAL HAEMORRHAGE [None]
